FAERS Safety Report 5315136-0 (Version None)
Quarter: 2007Q2

REPORT INFORMATION
  Report Type: 
  Country: None (occurrence: None)
  Receive Date: 20070502
  Receipt Date: 20070430
  Transmission Date: 20071010
  Serious: Yes (Hospitalization)
  Sender: FDA-Public Use
  Company Number: JP-ALLERGAN-0704391US

PATIENT
  Sex: Male

DRUGS (2)
  1. ALESION TABLET [Suspect]
     Indication: PSORIASIS
     Dosage: 20 MG, UNK
     Route: 048
     Dates: start: 20060501
  2. ALLOPURINOL [Suspect]
     Indication: DRUG USE FOR UNKNOWN INDICATION
     Route: 048

REACTIONS (1)
  - PLATELET COUNT DECREASED [None]
